FAERS Safety Report 16962006 (Version 1)
Quarter: 2019Q4

REPORT INFORMATION
  Report Type: Spontaneous
  Country: FR (occurrence: FR)
  Receive Date: 20191025
  Receipt Date: 20191025
  Transmission Date: 20200122
  Serious: Yes (Hospitalization)
  Sender: FDA-Public Use
  Company Number: FR-B.I. PHARMACEUTICALS,INC./RIDGEFIELD-2019-12-109192

PATIENT
  Age: 70 Year
  Sex: Female
  Weight: 62 kg

DRUGS (2)
  1. MICARDIS [Suspect]
     Active Substance: TELMISARTAN
     Indication: HYPERTENSION
     Route: 048
  2. OPDIVO [Suspect]
     Active Substance: NIVOLUMAB
     Indication: LUNG ADENOCARCINOMA STAGE IV
     Dosage: OPDIVO 10 MG/ML,
     Route: 065
     Dates: start: 20180427, end: 20180817

REACTIONS (3)
  - Hypophysitis [Recovered/Resolved]
  - Thyroiditis [Recovered/Resolved with Sequelae]
  - Adrenal insufficiency [Recovered/Resolved]

NARRATIVE: CASE EVENT DATE: 201806
